FAERS Safety Report 19535679 (Version 4)
Quarter: 2021Q4

REPORT INFORMATION
  Report Type: Report from Study
  Country: US (occurrence: US)
  Receive Date: 20210713
  Receipt Date: 20211025
  Transmission Date: 20220303
  Serious: No
  Sender: FDA-Public Use
  Company Number: NVSC2021US148265

PATIENT
  Sex: Male

DRUGS (1)
  1. COSENTYX [Suspect]
     Active Substance: SECUKINUMAB
     Indication: Product used for unknown indication
     Dosage: UNK
     Route: 065

REACTIONS (8)
  - Anxiety [Unknown]
  - Restlessness [Unknown]
  - Sleep disorder [Unknown]
  - Psoriasis [Unknown]
  - Scratch [Unknown]
  - Pruritus [Unknown]
  - Skin exfoliation [Unknown]
  - Product prescribing issue [Unknown]
